FAERS Safety Report 16776067 (Version 1)
Quarter: 2019Q3

REPORT INFORMATION
  Report Type: Spontaneous
  Country: US (occurrence: US)
  Receive Date: 20190905
  Receipt Date: 20190905
  Transmission Date: 20191005
  Serious: No
  Sender: FDA-Public Use
  Company Number: US-VIFOR (INTERNATIONAL) INC.-VIT-2019-08100

PATIENT
  Sex: Female

DRUGS (12)
  1. VITAMIN B12 [Concomitant]
     Active Substance: CYANOCOBALAMIN
  2. TIMOLOL. [Concomitant]
     Active Substance: TIMOLOL
  3. VELTASSA [Suspect]
     Active Substance: PATIROMER
     Route: 048
  4. A-HYDROCORT [Concomitant]
     Active Substance: HYDROCORTISONE SODIUM SUCCINATE
  5. AMITRIPTYLIN [Concomitant]
     Active Substance: AMITRIPTYLINE
  6. MAGNESIUM [Concomitant]
     Active Substance: MAGNESIUM
  7. PRESERVISION [Concomitant]
     Active Substance: MINERALS\VITAMINS
  8. ALBUTEROL. [Concomitant]
     Active Substance: ALBUTEROL
  9. LEVOTHYROXIN [Concomitant]
     Active Substance: LEVOTHYROXINE
  10. VELTASSA [Suspect]
     Active Substance: PATIROMER
     Indication: HYPERKALAEMIA
     Route: 048
  11. IBUPROFEN. [Concomitant]
     Active Substance: IBUPROFEN
  12. OMEPRAZOLE. [Concomitant]
     Active Substance: OMEPRAZOLE

REACTIONS (2)
  - Constipation [Recovering/Resolving]
  - Inappropriate schedule of product administration [Unknown]
